FAERS Safety Report 11356432 (Version 1)
Quarter: 2015Q3

REPORT INFORMATION
  Report Type: Spontaneous
  Country: US (occurrence: US)
  Receive Date: 20150807
  Receipt Date: 20150807
  Transmission Date: 20151125
  Serious: No
  Sender: FDA-Public Use
  Company Number: US-PFIZER INC-2015256617

PATIENT
  Age: 47 Year
  Sex: Female
  Weight: 83.9 kg

DRUGS (7)
  1. BUPROPION. [Concomitant]
     Active Substance: BUPROPION
     Dosage: 200 MG, 2X/DAY
  2. GABAPENTIN. [Suspect]
     Active Substance: GABAPENTIN
     Indication: FIBROMYALGIA
     Dosage: UNK
  3. ROBAXIN [Concomitant]
     Active Substance: METHOCARBAMOL
     Indication: MUSCLE RELAXANT THERAPY
     Dosage: 750 MG, 3X/DAY
  4. CLONAZEPAM. [Concomitant]
     Active Substance: CLONAZEPAM
     Dosage: 0.5 MG, 3X/DAY
  5. LITHIUM. [Concomitant]
     Active Substance: LITHIUM
     Dosage: 300 MG, 2X/DAY
  6. CLINORIL [Concomitant]
     Active Substance: SULINDAC
     Dosage: 200 MG, 2X/DAY
  7. TRILEPTAL [Concomitant]
     Active Substance: OXCARBAZEPINE
     Indication: BIPOLAR DISORDER
     Dosage: 300 MG, 3X/DAY

REACTIONS (1)
  - Drug ineffective [Unknown]
